FAERS Safety Report 6522795-3 (Version None)
Quarter: 2009Q4

REPORT INFORMATION
  Report Type: 
  Country: None (occurrence: None)
  Receive Date: 20091230
  Receipt Date: 20091218
  Transmission Date: 20100525
  Serious: Yes (Hospitalization)
  Sender: FDA-Public Use
  Company Number: IT-MYLANLABS-2009S1021666

PATIENT
  Sex: Female

DRUGS (2)
  1. DOXAZOSIN [Suspect]
     Indication: DRUG USE FOR UNKNOWN INDICATION
  2. DILTIAZEM [Suspect]
     Indication: DRUG USE FOR UNKNOWN INDICATION

REACTIONS (2)
  - HYPOTENSION [None]
  - MALAISE [None]
